FAERS Safety Report 8965111 (Version 1)
Quarter: 2012Q4

REPORT INFORMATION
  Report Type: 
  Country: FR (occurrence: FR)
  Receive Date: 20121213
  Receipt Date: 20121213
  Transmission Date: 20130627
  Serious: Yes (Other)
  Sender: FDA-Public Use
  Company Number: FR-ROCHE-1164349

PATIENT
  Age: 80 Year
  Sex: Female

DRUGS (8)
  1. BEVACIZUMAB [Suspect]
     Indication: BREAST CANCER
     Dosage: chemotherepy day1/day 8/day 16
     Route: 042
  2. CARBOPLATIN [Suspect]
     Indication: BREAST CANCER
     Dosage: chemotherepy day1/day 8/day 16
     Route: 042
  3. PACLITAXEL [Suspect]
     Indication: BREAST CANCER
     Dosage: chemotherepy day1/day 8/day 16
     Route: 042
  4. AZANTAC [Suspect]
     Indication: PREMEDICATION
     Dosage: 50mg/2ml
     Route: 042
  5. DEXAMETHASONE [Suspect]
     Indication: PREMEDICATION
     Route: 042
  6. POLARAMINE [Suspect]
     Indication: PREMEDICATION
     Dosage: 5mg/1ml
     Route: 042
  7. ONDANSETRON [Suspect]
     Indication: PREMEDICATION
     Route: 042
  8. HYDROXYZINE HYDROCHLORIDE [Suspect]
     Indication: PREMEDICATION
     Dosage: 100mg/2ml
     Route: 042

REACTIONS (4)
  - Hypotension [Recovered/Resolved]
  - Face oedema [Recovered/Resolved]
  - Diarrhoea [Recovered/Resolved]
  - Malaise [Recovered/Resolved]
